FAERS Safety Report 21067458 (Version 2)
Quarter: 2022Q3

REPORT INFORMATION
  Report Type: Report from Study
  Country: CA (occurrence: CA)
  Receive Date: 20220712
  Receipt Date: 20220824
  Transmission Date: 20221027
  Serious: Yes (Hospitalization)
  Sender: FDA-Public Use
  Company Number: CA-JNJFOC-20220636298

PATIENT
  Age: 57 Year
  Sex: Male
  Weight: 72 kg

DRUGS (1)
  1. REMICADE [Suspect]
     Active Substance: INFLIXIMAB
     Indication: Crohn^s disease
     Dosage: LAST INFUSED ON17-MAY-2022?EXPIRY DATE- 31-DEC-2024
     Route: 042
     Dates: start: 20100405

REACTIONS (5)
  - Urinary tract infection [Recovering/Resolving]
  - Kidney infection [Recovering/Resolving]
  - Sepsis [Recovering/Resolving]
  - Impetigo [Recovering/Resolving]
  - Off label use [Unknown]

NARRATIVE: CASE EVENT DATE: 20100405
